FAERS Safety Report 8996728 (Version 1)
Quarter: 2013Q1

REPORT INFORMATION
  Report Type: Spontaneous
  Country: US (occurrence: US)
  Receive Date: 20130104
  Receipt Date: 20130104
  Transmission Date: 20140127
  Serious: Yes (Death, Hospitalization, Other)
  Sender: FDA-Public Use
  Company Number: US-PFIZER INC-2013000086

PATIENT
  Age: 51 Year
  Sex: Female
  Weight: 120 kg

DRUGS (9)
  1. REVATIO [Suspect]
     Indication: PULMONARY HYPERTENSION
     Dosage: UNK
     Dates: start: 20120807
  2. LANTUS [Concomitant]
     Dosage: UNK
  3. ALBUTEROL [Concomitant]
     Dosage: UNK
  4. FUROSEMIDE [Concomitant]
     Dosage: UNK
  5. ALDACTONE [Concomitant]
     Dosage: UNK
  6. SYMBICORT [Concomitant]
     Dosage: UNK
  7. ZOLOFT [Concomitant]
     Dosage: UNK
  8. CLONAZEPAM [Concomitant]
     Dosage: UNK
  9. IMURAN [Concomitant]
     Dosage: UNK

REACTIONS (4)
  - Cardiac failure congestive [Fatal]
  - Pulmonary hypertension [Fatal]
  - Renal failure [Fatal]
  - Metabolic acidosis [Unknown]
